FAERS Safety Report 9455733 (Version 1)
Quarter: 2013Q3

REPORT INFORMATION
  Report Type: Report from Study
  Country: US (occurrence: US)
  Receive Date: 20130813
  Receipt Date: 20130813
  Transmission Date: 20140515
  Serious: Yes (Other)
  Sender: FDA-Public Use
  Company Number: US-BAYER-2013-084428

PATIENT
  Age: 50 Year
  Sex: 0
  Weight: 59.86 kg

DRUGS (2)
  1. BETASERON [Suspect]
     Indication: RELAPSING-REMITTING MULTIPLE SCLEROSIS
     Dosage: UNK
     Dates: start: 20010320, end: 20120927
  2. BETASERON [Suspect]
     Indication: RELAPSING-REMITTING MULTIPLE SCLEROSIS
     Dosage: 8 MIU, QOD
     Route: 058
     Dates: start: 20121113, end: 20130425

REACTIONS (3)
  - Segmented hyalinising vasculitis [Recovering/Resolving]
  - Skin discolouration [Recovering/Resolving]
  - Pain in extremity [Recovering/Resolving]
